FAERS Safety Report 4700950-2 (Version None)
Quarter: 2005Q2

REPORT INFORMATION
  Report Type: 
  Country: None (occurrence: None)
  Receive Date: 20050624
  Receipt Date: 20050613
  Transmission Date: 20051028
  Serious: Yes (Life-Threatening, Hospitalization)
  Sender: FDA-Public Use
  Company Number: MK200506-0136-1

PATIENT
  Age: 40 Year
  Sex: Male

DRUGS (8)
  1. METHADOSE [Suspect]
     Indication: PAIN
     Dosage: 140 MG Q 6 HR PO
     Route: 048
     Dates: end: 20031001
  2. MORPHINE [Suspect]
     Indication: PAIN
     Dosage: 120 MG Q 4 HR PO
     Route: 048
     Dates: start: 20031001
  3. IV HYDRATION [Concomitant]
  4. IV HYDROMORPHONE [Concomitant]
  5. HYDROMORPHONE HCL [Concomitant]
  6. IBUPROFEN [Concomitant]
  7. KETOROLAC TROMETHAMINE [Concomitant]
  8. SPINAL ANALGESIA [Concomitant]

REACTIONS (13)
  - BLOOD PRESSURE SYSTOLIC INCREASED [None]
  - BRADYCARDIA [None]
  - CARDIAC VALVE DISEASE [None]
  - CARDIOMYOPATHY [None]
  - ELECTROCARDIOGRAM QT CORRECTED INTERVAL PROLONGED [None]
  - ELECTROLYTE IMBALANCE [None]
  - EXTRASYSTOLES [None]
  - HYPERHIDROSIS [None]
  - HYPOCALCAEMIA [None]
  - HYPOKALAEMIA [None]
  - PULMONARY HYPERTENSION [None]
  - TORSADE DE POINTES [None]
  - VENTRICULAR TACHYCARDIA [None]
